FAERS Safety Report 7537223-9 (Version None)
Quarter: 2011Q2

REPORT INFORMATION
  Report Type: 
  Country: None (occurrence: None)
  Receive Date: 20110524
  Receipt Date: 20110330
  Transmission Date: 20111010
  Serious: No
  Sender: FDA-Public Use
  Company Number: 030435

PATIENT
  Sex: Male
  Weight: 123.3 kg

DRUGS (5)
  1. CIMZIA [Suspect]
     Indication: CROHN'S DISEASE
     Dosage: 400MG 1X/MONTH SUBCUTANEOUS 200MG MG 1X/2 WEEKS SUBCUTANEOUS
     Route: 058
     Dates: start: 20090701, end: 20090901
  2. CIMZIA [Suspect]
     Indication: CROHN'S DISEASE
     Dosage: 400MG 1X/MONTH SUBCUTANEOUS 200MG MG 1X/2 WEEKS SUBCUTANEOUS
     Route: 058
     Dates: start: 20090923
  3. DIOVAN HCT [Concomitant]
  4. CALCIUM W/ VITAMIN D NOS [Concomitant]
  5. SIMVASTATIN [Concomitant]

REACTIONS (4)
  - DEHYDRATION [None]
  - LIVER FUNCTION TEST ABNORMAL [None]
  - DIARRHOEA [None]
  - BODY TEMPERATURE INCREASED [None]
